FAERS Safety Report 4963769-3 (Version None)
Quarter: 2006Q1

REPORT INFORMATION
  Report Type: 
  Country: None (occurrence: None)
  Receive Date: 20060330
  Receipt Date: 20060321
  Transmission Date: 20060701
  Serious: Yes (Other)
  Sender: FDA-Public Use
  Company Number: 2006039556

PATIENT
  Age: 67 Year
  Sex: Female
  Weight: 83.4619 kg

DRUGS (7)
  1. CELEBREX [Suspect]
     Indication: ARTHRITIS
     Dosage: 200 MG (200 MG, 1 IN 1 D),
     Dates: start: 20050101
  2. PRILOSEC [Concomitant]
  3. FAMOTIDINE [Concomitant]
  4. NEURONTIN [Concomitant]
  5. FLEXERIL [Concomitant]
  6. HUMIBID (GUAIFENESIN) [Concomitant]
  7. ASPIRIN [Concomitant]

REACTIONS (4)
  - CONDITION AGGRAVATED [None]
  - DIARRHOEA [None]
  - FATIGUE [None]
  - SPINAL OPERATION [None]
